FAERS Safety Report 15738831 (Version 1)
Quarter: 2018Q4

REPORT INFORMATION
  Report Type: Spontaneous
  Country: DE (occurrence: DE)
  Receive Date: 20181219
  Receipt Date: 20181219
  Transmission Date: 20190205
  Serious: Yes (Other)
  Sender: FDA-Public Use
  Company Number: DE-TEVA-2018-DE-990696

PATIENT
  Sex: Female

DRUGS (1)
  1. COTRIM [Suspect]
     Active Substance: SULFAMETHOXAZOLE\TRIMETHOPRIM
     Dosage: ADMINISTRATION OF 4 AMPOULES COTRIM IN 250ML 0,9% NACL

REACTIONS (2)
  - Acute hepatic failure [Unknown]
  - Acute kidney injury [Unknown]
